FAERS Safety Report 10086586 (Version 1)
Quarter: 2014Q2

REPORT INFORMATION
  Report Type: Report from Study
  Country: IT (occurrence: IT)
  Receive Date: 20140418
  Receipt Date: 20140418
  Transmission Date: 20141212
  Serious: Yes (Other)
  Sender: FDA-Public Use
  Company Number: IT-BAXTER-2014BAX018495

PATIENT
  Age: 9 Year
  Sex: Male

DRUGS (5)
  1. ADVATE 250 IU POWDER AND SOLVENT FOR SOLUTION FOR INJECTION [Suspect]
     Indication: IMMUNE TOLERANCE INDUCTION
     Route: 042
     Dates: start: 20061115
  2. ADVATE 250 IU POWDER AND SOLVENT FOR SOLUTION FOR INJECTION [Suspect]
     Indication: OFF LABEL USE
     Route: 042
     Dates: start: 2014
  3. ADVATE 250 IU POWDER AND SOLVENT FOR SOLUTION FOR INJECTION [Suspect]
     Indication: PRODUCT USED FOR UNKNOWN INDICATION
     Route: 042
     Dates: start: 2008
  4. NOVOSEVEN [Suspect]
     Indication: PRODUCT USED FOR UNKNOWN INDICATION
     Dosage: ON DEMAND
     Route: 065
  5. FEIBA [Concomitant]
     Indication: PROPHYLAXIS
     Dosage: PROPHYLAXIS
     Route: 065

REACTIONS (4)
  - Factor VIII inhibition [Not Recovered/Not Resolved]
  - Cardiac arrest [Recovered/Resolved]
  - Head injury [Recovered/Resolved]
  - Drug ineffective [Not Recovered/Not Resolved]
